FAERS Safety Report 14789540 (Version 1)
Quarter: 2018Q2

REPORT INFORMATION
  Report Type: Spontaneous
  Country: US (occurrence: US)
  Receive Date: 20180423
  Receipt Date: 20180423
  Transmission Date: 20180711
  Serious: No
  Sender: FDA-Public Use
  Company Number: US-TEVA-803507ACC

PATIENT
  Sex: Female

DRUGS (1)
  1. PRAVASTATIN. [Suspect]
     Active Substance: PRAVASTATIN

REACTIONS (14)
  - Restlessness [Unknown]
  - Feeling abnormal [Unknown]
  - Constipation [Unknown]
  - Oropharyngeal pain [Unknown]
  - Vision blurred [Unknown]
  - Product use issue [Unknown]
  - Diarrhoea [Unknown]
  - Vomiting [Unknown]
  - Headache [Unknown]
  - Nausea [Unknown]
  - Dry mouth [Unknown]
  - Hyperhidrosis [Unknown]
  - Panic attack [Unknown]
  - Dizziness [Unknown]
